FAERS Safety Report 9125814 (Version 1)
Quarter: 2013Q1

REPORT INFORMATION
  Report Type: Spontaneous
  Country: BE (occurrence: BE)
  Receive Date: 20130227
  Receipt Date: 20130227
  Transmission Date: 20140127
  Serious: Yes (Disabling)
  Sender: FDA-Public Use
  Company Number: BE-B.I. PHARMACEUTICALS,INC./RIDGEFIELD-2013-BL-00069BL

PATIENT
  Sex: Male
  Weight: 111 kg

DRUGS (9)
  1. PRADAXA [Suspect]
     Indication: ATRIAL FIBRILLATION
     Dosage: 220 MG
     Route: 048
  2. ZANIDIP [Concomitant]
     Dosage: 10 NR
  3. AMARYLLE [Concomitant]
  4. ZYLORIC [Concomitant]
  5. TRITACE [Concomitant]
     Dosage: 10 NR
  6. GLUCOPHAGE [Concomitant]
     Dosage: 1700 NR
  7. ALDACTONE [Concomitant]
  8. BURINEX [Concomitant]
  9. LIPANTHYL [Concomitant]

REACTIONS (2)
  - Oedema peripheral [Not Recovered/Not Resolved]
  - Ocular hyperaemia [Not Recovered/Not Resolved]
